FAERS Safety Report 17803893 (Version 3)
Quarter: 2020Q3

REPORT INFORMATION
  Report Type: Spontaneous
  Country: CN (occurrence: CN)
  Receive Date: 20200519
  Receipt Date: 20200916
  Transmission Date: 20201102
  Serious: Yes (Hospitalization, Other)
  Sender: FDA-Public Use
  Company Number: NVSC2020CN136006

PATIENT
  Age: 14 Year
  Sex: Female

DRUGS (1)
  1. COSENTYX [Suspect]
     Active Substance: SECUKINUMAB
     Indication: PSORIASIS
     Dosage: 150 MG, UNKNOWN
     Route: 065
     Dates: start: 20200511

REACTIONS (7)
  - Dyspnoea [Unknown]
  - Medication error [Unknown]
  - Dermatomyositis [Unknown]
  - Rash [Recovering/Resolving]
  - Hyperpyrexia [Recovering/Resolving]
  - Pruritus [Unknown]
  - Relapsing fever [Unknown]

NARRATIVE: CASE EVENT DATE: 20200512
